FAERS Safety Report 26194006 (Version 1)
Quarter: 2025Q4

REPORT INFORMATION
  Report Type: Spontaneous
  Country: EU (occurrence: EU)
  Receive Date: 20251224
  Receipt Date: 20251224
  Transmission Date: 20260118
  Serious: Yes (Hospitalization, Other)
  Sender: TEVA
  Company Number: EU-EMB-M202405083-1

PATIENT
  Sex: Male

DRUGS (5)
  1. QUETIAPINE [Suspect]
     Active Substance: QUETIAPINE
     Indication: Schizoaffective disorder
     Route: 064
     Dates: start: 202312, end: 202409
  2. SERTRALINE [Suspect]
     Active Substance: SERTRALINE HYDROCHLORIDE
     Indication: Schizoaffective disorder
     Route: 064
     Dates: start: 202312, end: 202409
  3. FOLIC ACID [Concomitant]
     Active Substance: FOLIC ACID
     Indication: Prophylaxis of neural tube defect
     Route: 064
     Dates: start: 202411, end: 202503
  4. PERTUSSIS VACCINE [Concomitant]
     Active Substance: PERTUSSIS VACCINE
     Indication: Immunisation
     Dosage: DATE UNKNOWN
     Route: 064
  5. LEVOTHYROXINE SODIUM\POTASSIUM IODIDE [Concomitant]
     Active Substance: LEVOTHYROXINE SODIUM\POTASSIUM IODIDE
     Indication: Thyroid hormone replacement therapy
     Dosage: COMBINATION PRODUCT: 100 ?G LEVOTHYROXINE/150 ?G IODIDE, THYRONAJOD 100
     Route: 064
     Dates: start: 202312, end: 202409

REACTIONS (4)
  - Bradycardia neonatal [Recovered/Resolved]
  - Fever neonatal [Unknown]
  - Respiratory disorder neonatal [Recovered/Resolved]
  - Foetal exposure during pregnancy [Unknown]

NARRATIVE: CASE EVENT DATE: 20240901
